FAERS Safety Report 8358139-4 (Version None)
Quarter: 2012Q2

REPORT INFORMATION
  Report Type: 
  Country: None (occurrence: None)
  Receive Date: 20120514
  Receipt Date: 20100610
  Transmission Date: 20120825
  Serious: Yes (Hospitalization)
  Sender: FDA-Public Use
  Company Number: US-GLAXOSMITHKLINE-A0864638A

PATIENT
  Age: 71 Year
  Sex: Male

DRUGS (1)
  1. AVANDIA [Suspect]
     Indication: DIABETES MELLITUS

REACTIONS (4)
  - RESPIRATORY DISTRESS [None]
  - CARDIAC FAILURE CONGESTIVE [None]
  - PNEUMONIA [None]
  - ATRIAL FIBRILLATION [None]
